FAERS Safety Report 9703288 (Version 3)
Quarter: 2014Q2

REPORT INFORMATION
  Report Type: Spontaneous
  Country: FR (occurrence: FR)
  Receive Date: 20131122
  Receipt Date: 20140428
  Transmission Date: 20141212
  Serious: Yes (Hospitalization, Other)
  Sender: FDA-Public Use
  Company Number: FR-009507513-1311FRA006490

PATIENT
  Age: 63 Year
  Sex: Male

DRUGS (7)
  1. ZOCOR 20MG [Suspect]
     Indication: PRODUCT USED FOR UNKNOWN INDICATION
     Dosage: 20 MG, QPM
     Route: 048
     Dates: end: 20130829
  2. EUCREAS [Suspect]
     Indication: PRODUCT USED FOR UNKNOWN INDICATION
     Dosage: 1 DF, BID
     Route: 048
     Dates: start: 20130801, end: 20130829
  3. TRIATEC (RAMIPRIL) [Suspect]
     Indication: PRODUCT USED FOR UNKNOWN INDICATION
     Dosage: 5 MG, QAM
     Route: 048
     Dates: start: 20130801, end: 20130829
  4. DIAMICRON [Suspect]
     Indication: PRODUCT USED FOR UNKNOWN INDICATION
     Dosage: 30 MG, QD
     Route: 048
     Dates: end: 20130829
  5. TEMERIT [Suspect]
     Indication: PRODUCT USED FOR UNKNOWN INDICATION
     Dosage: 5 MG, QAM
     Route: 048
     Dates: end: 20130829
  6. IXPRIM (ACETAMINOPHEN (+) TRAMADOL HYDROCHLORIDE) [Suspect]
     Indication: ROTATOR CUFF SYNDROME
     Dosage: UNK, PRN
     Route: 048
     Dates: start: 20130822, end: 20130829
  7. LERCAN [Concomitant]
     Dosage: 20 MG, QPM
     Route: 048
     Dates: end: 20130829

REACTIONS (4)
  - Renal failure acute [Recovered/Resolved]
  - Tubulointerstitial nephritis [Recovered/Resolved]
  - Hyperkalaemia [Recovered/Resolved]
  - Lipase increased [Recovered/Resolved]
